FAERS Safety Report 6902348-5 (Version None)
Quarter: 2010Q3

REPORT INFORMATION
  Report Type: 
  Country: None (occurrence: None)
  Receive Date: 20100803
  Receipt Date: 20080822
  Transmission Date: 20110219
  Serious: No
  Sender: FDA-Public Use
  Company Number: US-PFIZER INC-2008042410

PATIENT
  Sex: Female
  Weight: 72.12 kg

DRUGS (6)
  1. LYRICA [Suspect]
     Indication: NERVE INJURY
     Dates: start: 20030101
  2. OXYCODONE [Concomitant]
  3. LEXAPRO [Concomitant]
  4. PROZAC [Concomitant]
  5. PRILOSEC [Concomitant]
  6. OXYMORPHONE HYDROCHLORIDE [Concomitant]

REACTIONS (6)
  - ARTHRALGIA [None]
  - DISTURBANCE IN ATTENTION [None]
  - FACE OEDEMA [None]
  - OEDEMA PERIPHERAL [None]
  - PAIN IN EXTREMITY [None]
  - WEIGHT INCREASED [None]
